FAERS Safety Report 12636273 (Version 2)
Quarter: 2016Q3

REPORT INFORMATION
  Report Type: Report from Study
  Country: MX (occurrence: MX)
  Receive Date: 20160809
  Receipt Date: 20160905
  Transmission Date: 20161109
  Serious: Yes (Other)
  Sender: FDA-Public Use
  Company Number: MX-ORION CORPORATION ORION PHARMA-ENTC2016-0432

PATIENT
  Sex: Male
  Weight: 54.2 kg

DRUGS (6)
  1. PANAZECLOX [Concomitant]
     Route: 065
  2. SINEMET [Concomitant]
     Active Substance: CARBIDOPA\LEVODOPA
     Indication: MUSCLE SPASMS
     Route: 065
  3. STALEVO [Suspect]
     Active Substance: CARBIDOPA\ENTACAPONE\LEVODOPA
     Indication: PARKINSON^S DISEASE
     Route: 048
  4. STALEVO [Suspect]
     Active Substance: CARBIDOPA\ENTACAPONE\LEVODOPA
     Dosage: STRENGTH: 150/37.5/200 MG
     Route: 065
  5. MICARDIS [Concomitant]
     Active Substance: TELMISARTAN
     Indication: MUSCLE SPASMS
     Route: 065
  6. ASPIRIN PROTECT [Concomitant]
     Active Substance: ASPIRIN
     Route: 065

REACTIONS (10)
  - Mobility decreased [Not Recovered/Not Resolved]
  - Malaise [Not Recovered/Not Resolved]
  - Muscle spasms [Not Recovered/Not Resolved]
  - Weight decreased [Not Recovered/Not Resolved]
  - Arthralgia [Not Recovered/Not Resolved]
  - Pain in extremity [Not Recovered/Not Resolved]
  - Blood pressure diastolic increased [Not Recovered/Not Resolved]
  - Muscle strain [Not Recovered/Not Resolved]
  - Knee deformity [Not Recovered/Not Resolved]
  - Foot deformity [Not Recovered/Not Resolved]
